FAERS Safety Report 14168550 (Version 9)
Quarter: 2021Q1

REPORT INFORMATION
  Report Type: Spontaneous
  Country: US (occurrence: US)
  Receive Date: 20171107
  Receipt Date: 20210113
  Transmission Date: 20210419
  Serious: No
  Sender: FDA-Public Use
  Company Number: US-SA-2017SA178580

PATIENT
  Age: 78 Year
  Sex: Female

DRUGS (3)
  1. TOUJEO [Suspect]
     Active Substance: INSULIN GLARGINE
     Indication: TYPE 2 DIABETES MELLITUS
     Dosage: 47 IU
     Route: 058
  2. LEVEMIR [Concomitant]
     Active Substance: INSULIN DETEMIR
     Dosage: UNK
     Route: 065
  3. TOUJEO [Suspect]
     Active Substance: INSULIN GLARGINE
     Dosage: 52 IU, QD
     Route: 065

REACTIONS (8)
  - Blood glucose increased [Unknown]
  - Product storage error [Unknown]
  - Hypoacusis [Unknown]
  - Tremor [Unknown]
  - Visual impairment [Unknown]
  - Product dose omission issue [Unknown]
  - Device operational issue [Unknown]
  - Nervousness [Unknown]
